FAERS Safety Report 19710410 (Version 1)
Quarter: 2021Q3

REPORT INFORMATION
  Report Type: Spontaneous
  Country: FR (occurrence: FR)
  Receive Date: 20210817
  Receipt Date: 20210817
  Transmission Date: 20211014
  Serious: Yes (Death, Hospitalization, Other)
  Sender: FDA-Public Use
  Company Number: FR-MYLANLABS-2021M1051077

PATIENT
  Age: 12 Year
  Sex: Female
  Weight: 40 kg

DRUGS (28)
  1. CUBICIN [Interacting]
     Active Substance: DAPTOMYCIN
     Indication: BONE SARCOMA
  2. CALCIUM [Concomitant]
     Active Substance: CALCIUM
     Dosage: UNK
  3. VITAMIN D                          /07503901/ [Concomitant]
     Active Substance: VITAMIN D NOS
     Dosage: UNK
  4. ALIZAPRIDE HYDROCHLORIDE [Concomitant]
     Active Substance: ALIZAPRIDE HYDROCHLORIDE
     Dosage: UNK
  5. ETOPOSIDE. [Interacting]
     Active Substance: ETOPOSIDE
     Indication: BONE SARCOMA
  6. METHOTREXATE. [Interacting]
     Active Substance: METHOTREXATE
     Indication: SEPSIS
  7. CYCLOPHOSPHAMIDE. [Interacting]
     Active Substance: CYCLOPHOSPHAMIDE
     Indication: BONE SARCOMA
     Dosage: UNK
  8. PERFALGAN [Concomitant]
     Active Substance: ACETAMINOPHEN
     Dosage: UNK
  9. ZOLEDRONIC ACID [Interacting]
     Active Substance: ZOLEDRONIC ACID
     Indication: BONE SARCOMA
  10. IFOSFAMIDE. [Interacting]
     Active Substance: IFOSFAMIDE
     Indication: SEPSIS
     Dosage: UNK
  11. RANITIDINE HYDROCHLORIDE. [Concomitant]
     Active Substance: RANITIDINE HYDROCHLORIDE
     Dosage: UNK
  12. VANCOMYCIN [Concomitant]
     Active Substance: VANCOMYCIN
     Dosage: UNK
  13. LINEZOLID. [Concomitant]
     Active Substance: LINEZOLID
     Dosage: UNK
  14. ETOPOSIDE. [Suspect]
     Active Substance: ETOPOSIDE
     Indication: SEPSIS
     Dosage: UNK
  15. METHOTREXATE. [Interacting]
     Active Substance: METHOTREXATE
     Indication: BONE SARCOMA
     Dosage: UNK
  16. ZOLEDRONIC ACID [Interacting]
     Active Substance: ZOLEDRONIC ACID
     Indication: SEPSIS
     Dosage: UNK
  17. CYCLOPHOSPHAMIDE. [Interacting]
     Active Substance: CYCLOPHOSPHAMIDE
     Indication: SEPSIS
  18. IFOSFAMIDE. [Interacting]
     Active Substance: IFOSFAMIDE
     Indication: BONE SARCOMA
  19. ADRIAMYCIN [Concomitant]
     Active Substance: DOXORUBICIN HYDROCHLORIDE
     Dosage: UNK
  20. LEUCOVORIN CALCIUM. [Concomitant]
     Active Substance: LEUCOVORIN CALCIUM
     Dosage: UNK
  21. CUBICIN [Interacting]
     Active Substance: DAPTOMYCIN
     Indication: SEPSIS
     Dosage: UNK
  22. PIPERACILLIN + TAZOBACTAM EBERTH [Concomitant]
     Active Substance: PIPERACILLIN SODIUM\TAZOBACTAM SODIUM
     Dosage: UNK
  23. MESNA. [Concomitant]
     Active Substance: MESNA
     Dosage: UNK
  24. PHOSPHORUS [Concomitant]
     Active Substance: PHOSPHORUS
     Dosage: UNK
  25. TARGOCID [Concomitant]
     Active Substance: TEICOPLANIN
     Dosage: UNK
  26. GENTAMICIN. [Concomitant]
     Active Substance: GENTAMICIN
     Dosage: UNK
  27. SKENAN [Concomitant]
     Active Substance: MORPHINE SULFATE
     Dosage: UNK
  28. CISPLATIN. [Concomitant]
     Active Substance: CISPLATIN
     Dosage: UNK

REACTIONS (5)
  - Drug interaction [Fatal]
  - Off label use [Unknown]
  - Hypocalcaemia [Fatal]
  - Sepsis [Fatal]
  - Toxicity to various agents [Fatal]

NARRATIVE: CASE EVENT DATE: 20120106
